FAERS Safety Report 9537088 (Version 2)
Quarter: 2013Q3

REPORT INFORMATION
  Report Type: Report from Study
  Country: FR (occurrence: FR)
  Receive Date: 20130919
  Receipt Date: 20130924
  Transmission Date: 20140515
  Serious: Yes (Hospitalization, Other)
  Sender: FDA-Public Use
  Company Number: FR-SANOFI-AVENTIS-CAMP-1002716

PATIENT
  Age: 71 Year
  Sex: Female

DRUGS (2)
  1. CAMPATH [Suspect]
     Indication: CHRONIC LYMPHOCYTIC LEUKAEMIA
     Dosage: 30 MG/ML, UNK DOSE:30 MILLIGRAM(S)/MILLILITRE
     Route: 058
     Dates: start: 20121008
  2. CAMPATH [Suspect]
     Indication: CHRONIC LYMPHOCYTIC LEUKAEMIA
     Route: 065
     Dates: start: 20130116

REACTIONS (5)
  - Restrictive pulmonary disease [Recovered/Resolved]
  - Bronchopneumonia [Unknown]
  - Pyrexia [Unknown]
  - Chills [Unknown]
  - Interstitial lung disease [Recovered/Resolved]
